FAERS Safety Report 8222140-1 (Version None)
Quarter: 2012Q1

REPORT INFORMATION
  Report Type: 
  Country: None (occurrence: None)
  Receive Date: 20120316
  Receipt Date: 20120306
  Transmission Date: 20120608
  Serious: Yes (Hospitalization)
  Sender: FDA-Public Use
  Company Number: 2012SP012660

PATIENT
  Age: 62 Year
  Sex: Male

DRUGS (6)
  1. IRBESARTAN AND HYDROCHLOROTHIAZIDE [Suspect]
     Indication: PRODUCT USED FOR UNKNOWN INDICATION
     Dosage: 1 DF; QD; PO
     Route: 048
     Dates: end: 20111224
  2. IMOVANE [Concomitant]
  3. EFFEXOR [Suspect]
     Indication: PRODUCT USED FOR UNKNOWN INDICATION
     Dosage: 75 MG; TID; PO
     Route: 048
     Dates: end: 20111224
  4. ALPRAZOLAM [Suspect]
     Indication: PRODUCT USED FOR UNKNOWN INDICATION
     Dosage: 0.375 MG; QD; PO
     Route: 048
     Dates: end: 20111224
  5. LOGIMAX (MODILOC) [Suspect]
     Indication: PRODUCT USED FOR UNKNOWN INDICATION
     Dosage: 1 DF; QD
     Dates: end: 20111224
  6. MIRTAZAPINE [Suspect]
     Indication: PRODUCT USED FOR UNKNOWN INDICATION
     Dosage: 15 MG; BID; PO
     Route: 048
     Dates: end: 20111224

REACTIONS (14)
  - GAIT DISTURBANCE [None]
  - FALL [None]
  - CONFUSIONAL STATE [None]
  - HYPOKALAEMIA [None]
  - HYPOCHLORAEMIA [None]
  - URINARY INCONTINENCE [None]
  - CONDUCTION DISORDER [None]
  - ELECTROCARDIOGRAM REPOLARISATION ABNORMALITY [None]
  - DECREASED APPETITE [None]
  - DIARRHOEA [None]
  - HYPONATRAEMIA [None]
  - RENAL FAILURE [None]
  - IATROGENIC INJURY [None]
  - GENERAL PHYSICAL HEALTH DETERIORATION [None]
